FAERS Safety Report 5043973-9 (Version None)
Quarter: 2006Q3

REPORT INFORMATION
  Report Type: 
  Country: None (occurrence: None)
  Receive Date: 20060706
  Receipt Date: 20060615
  Transmission Date: 20061208
  Serious: Yes (Hospitalization, Disabling)
  Sender: FDA-Public Use
  Company Number: 2006AP02811

PATIENT
  Age: 27509 Day
  Sex: Female
  Weight: 43.5 kg

DRUGS (7)
  1. OMEPRAL [Suspect]
     Indication: DUODENAL ULCER HAEMORRHAGE
     Route: 048
     Dates: start: 20060517, end: 20060614
  2. BEZATOR SR [Suspect]
     Indication: HYPERLIPIDAEMIA
     Route: 048
     Dates: start: 19991208, end: 20060614
  3. FERO-GRADUMET [Concomitant]
     Indication: IRON DEFICIENCY ANAEMIA
     Route: 048
     Dates: start: 20060517, end: 20060614
  4. DEPAS [Concomitant]
     Indication: INSOMNIA
     Route: 048
     Dates: start: 19960701
  5. URSOSAN [Concomitant]
     Indication: HEPATIC FUNCTION ABNORMAL
     Route: 048
     Dates: start: 19991208
  6. BASEN [Concomitant]
     Indication: DIABETES MELLITUS
     Route: 048
     Dates: start: 20011114
  7. MELBIN [Concomitant]
     Indication: DIABETES MELLITUS
     Route: 048
     Dates: start: 20050720

REACTIONS (1)
  - RHABDOMYOLYSIS [None]
